FAERS Safety Report 16540714 (Version 1)
Quarter: 2019Q3

REPORT INFORMATION
  Report Type: Spontaneous
  Country: US (occurrence: US)
  Receive Date: 20190707
  Receipt Date: 20190707
  Transmission Date: 20191004
  Serious: Yes (Disabling)
  Sender: FDA-Public Use
  Company Number: None

PATIENT
  Age: 57 Year
  Sex: Female
  Weight: 66.15 kg

DRUGS (11)
  1. SIMETHICONE (DIMETHICONE) [Concomitant]
     Active Substance: DIMETHICONE
  2. AVASTIN [Suspect]
     Active Substance: BEVACIZUMAB
     Indication: MALIGNANT PERITONEAL NEOPLASM
     Dosage: ?          OTHER FREQUENCY:EVERY 21 DAYS;OTHER ROUTE:INTO A CHEST PORT?
     Dates: start: 20190218
  3. VITAMINS D3 + B12 [Concomitant]
  4. DOCUSATE [Concomitant]
     Active Substance: DOCUSATE
  5. SENNA [Concomitant]
     Active Substance: SENNA LEAF\SENNOSIDES\SENNOSIDES A AND B
  6. MILK THISTLE [Concomitant]
     Active Substance: DIETARY SUPPLEMENT\HERBALS\MILK THISTLE
  7. TYLENOL [Concomitant]
     Active Substance: ACETAMINOPHEN
  8. BISACODYL. [Concomitant]
     Active Substance: BISACODYL
  9. LACTULOSE. [Concomitant]
     Active Substance: LACTULOSE
  10. CENTRUM SILVER WOMEN^S MULTI VITAMINS [Concomitant]
  11. PROBIOTIC [Concomitant]
     Active Substance: PROBIOTICS NOS

REACTIONS (16)
  - Musculoskeletal stiffness [None]
  - Dry eye [None]
  - Dyspepsia [None]
  - Dysphonia [None]
  - Headache [None]
  - Neck pain [None]
  - Fatigue [None]
  - Flatulence [None]
  - Hypertension [None]
  - Rhinorrhoea [None]
  - Paraesthesia [None]
  - Vision blurred [None]
  - Nausea [None]
  - Pain in extremity [None]
  - Constipation [None]
  - Hypoaesthesia [None]

NARRATIVE: CASE EVENT DATE: 20190218
